FAERS Safety Report 20844798 (Version 2)
Quarter: 2022Q3

REPORT INFORMATION
  Report Type: Report from Study
  Country: AR (occurrence: AR)
  Receive Date: 20220518
  Receipt Date: 20220828
  Transmission Date: 20221027
  Serious: Yes (Death, Hospitalization)
  Sender: FDA-Public Use
  Company Number: AR-NOVARTISPH-NVSC2022AR114411

PATIENT
  Sex: Female

DRUGS (2)
  1. KISQALI [Suspect]
     Active Substance: RIBOCICLIB
     Indication: Breast cancer metastatic
     Dosage: 600 MG, QD
     Route: 048
     Dates: start: 20220222
  2. KISQALI [Suspect]
     Active Substance: RIBOCICLIB
     Dosage: 200 MG, TID
     Route: 048
     Dates: start: 20220522

REACTIONS (5)
  - Breast cancer metastatic [Fatal]
  - Malignant neoplasm progression [Fatal]
  - Thrombosis [Recovering/Resolving]
  - Urinary tract obstruction [Recovering/Resolving]
  - Inappropriate schedule of product administration [Unknown]
